FAERS Safety Report 6217648-4 (Version None)
Quarter: 2009Q2

REPORT INFORMATION
  Report Type: 
  Country: None (occurrence: None)
  Receive Date: 20090608
  Receipt Date: 20090529
  Transmission Date: 20091009
  Serious: Yes (Other)
  Sender: FDA-Public Use
  Company Number: GB-TEVA-196616ISR

PATIENT
  Age: 38 Year
  Sex: Female

DRUGS (6)
  1. AMITRIPTLINE HYDROCHLORIDE TAB [Suspect]
  2. CODEINE SUL TAB [Suspect]
  3. LANSOPRAZOLE [Suspect]
  4. NAPROXEN [Suspect]
  5. LEFLUNOMIDE [Suspect]
     Indication: RHEUMATOID ARTHRITIS
     Route: 048
     Dates: start: 20040610, end: 20081215
  6. PARACETAMOL [Suspect]

REACTIONS (1)
  - ABORTION SPONTANEOUS [None]
